FAERS Safety Report 23068304 (Version 1)
Quarter: 2023Q4

REPORT INFORMATION
  Report Type: Spontaneous
  Country: US (occurrence: US)
  Receive Date: 20231016
  Receipt Date: 20231016
  Transmission Date: 20240110
  Serious: No
  Sender: FDA-Public Use
  Company Number: US-BoehringerIngelheim-2023-BI-265399

PATIENT
  Age: 40 Year
  Sex: Male

DRUGS (1)
  1. PRAMIPEXOLE [Suspect]
     Active Substance: PRAMIPEXOLE
     Indication: Restless legs syndrome
     Dosage: NIGHTLY

REACTIONS (4)
  - Impulse-control disorder [Recovered/Resolved]
  - Somnolence [Recovered/Resolved]
  - Cataplexy [Unknown]
  - Narcolepsy [Unknown]
